APPROVED DRUG PRODUCT: CHLORDIAZEPOXIDE HYDROCHLORIDE
Active Ingredient: CHLORDIAZEPOXIDE HYDROCHLORIDE
Strength: 25MG
Dosage Form/Route: CAPSULE;ORAL
Application: A089558 | Product #001
Applicant: PIONEER PHARMACEUTICALS INC
Approved: Jul 15, 1988 | RLD: No | RS: No | Type: DISCN